FAERS Safety Report 8879781 (Version 2)
Quarter: 2013Q1

REPORT INFORMATION
  Report Type: Spontaneous
  Country: US (occurrence: US)
  Receive Date: 20121101
  Receipt Date: 20130207
  Transmission Date: 20140127
  Serious: Yes (Other)
  Sender: FDA-Public Use
  Company Number: US-JNJFOC-20111204753

PATIENT
  Sex: Female

DRUGS (14)
  1. TOPAMAX [Suspect]
     Indication: WEIGHT DECREASED
     Route: 048
     Dates: start: 20060105, end: 20090226
  2. TOPAMAX [Suspect]
     Indication: WEIGHT DECREASED
     Route: 048
     Dates: start: 20060105, end: 20090226
  3. TOPAMAX [Suspect]
     Indication: MIGRAINE
     Route: 048
     Dates: start: 20060105, end: 20090226
  4. TOPAMAX [Suspect]
     Indication: MIGRAINE
     Route: 048
     Dates: start: 20060105, end: 20090226
  5. OMEPRAZOLE [Suspect]
     Indication: GASTROOESOPHAGEAL REFLUX DISEASE
     Route: 065
  6. ASPIRIN [Suspect]
     Indication: C-REACTIVE PROTEIN INCREASED
     Route: 065
  7. PENICILLIN G [Suspect]
     Indication: STREPTOCOCCAL INFECTION
     Route: 042
  8. PENICILLIN G [Suspect]
     Indication: STREPTOCOCCAL INFECTION
     Route: 042
  9. AMBIEN [Suspect]
     Indication: PRODUCT USED FOR UNKNOWN INDICATION
     Route: 048
  10. DINOPROSTONE [Suspect]
     Indication: INTERVERTEBRAL DISC PROTRUSION
     Route: 067
  11. PHENERGAN [Suspect]
     Indication: PRODUCT USED FOR UNKNOWN INDICATION
     Route: 042
  12. NUBAIN [Suspect]
     Indication: PRODUCT USED FOR UNKNOWN INDICATION
     Route: 042
  13. LACTATED RINGER^S [Suspect]
     Indication: PRODUCT USED FOR UNKNOWN INDICATION
     Dosage: 125ML/HR.
     Route: 042
  14. PRENATAL VITAMINS [Concomitant]
     Route: 065

REACTIONS (3)
  - Postpartum depression [Recovering/Resolving]
  - Polyhydramnios [Unknown]
  - Exposure during pregnancy [Recovered/Resolved]
